FAERS Safety Report 20298310 (Version 5)
Quarter: 2022Q2

REPORT INFORMATION
  Report Type: Other
  Country: CO (occurrence: None)
  Receive Date: 20220105
  Receipt Date: 20220414
  Transmission Date: 20220720
  Serious: Yes (Other)
  Sender: FDA-Public Use
  Company Number: CO-ROCHE-2988767

PATIENT
  Age: 55 Year
  Sex: Female

DRUGS (10)
  1. ADO-TRASTUZUMAB EMTANSINE [Suspect]
     Active Substance: ADO-TRASTUZUMAB EMTANSINE
     Indication: Breast cancer
     Route: 042
     Dates: start: 20201026, end: 20210510
  2. TRASTUZUMAB [Suspect]
     Active Substance: TRASTUZUMAB
     Indication: Breast cancer
     Route: 041
     Dates: start: 20191025, end: 20200212
  3. TRASTUZUMAB [Suspect]
     Active Substance: TRASTUZUMAB
     Route: 041
     Dates: start: 20200326, end: 20200929
  4. PERTUZUMAB [Suspect]
     Active Substance: PERTUZUMAB
     Indication: Breast cancer
     Route: 042
     Dates: start: 20191025, end: 20200212
  5. PERTUZUMAB [Suspect]
     Active Substance: PERTUZUMAB
     Route: 042
     Dates: start: 20200326, end: 20200929
  6. DOCETAXEL [Suspect]
     Active Substance: DOCETAXEL
     Indication: Breast cancer
     Route: 042
     Dates: start: 20191025, end: 20200212
  7. EXEMESTANE [Suspect]
     Active Substance: EXEMESTANE
     Indication: Breast cancer
     Route: 048
     Dates: start: 20200312
  8. ONDANSETRON [Concomitant]
     Active Substance: ONDANSETRON
     Dates: start: 20210525
  9. ACETAMINOPHEN [Concomitant]
     Active Substance: ACETAMINOPHEN
     Dates: start: 20210525
  10. PREGABALIN [Concomitant]
     Active Substance: PREGABALIN
     Dates: start: 20210525

REACTIONS (4)
  - Hyperbilirubinaemia [Recovered/Resolved]
  - Forced expiratory volume decreased [Recovered/Resolved]
  - Thrombocytopenia [Recovering/Resolving]
  - Anaemia [Recovering/Resolving]

NARRATIVE: CASE EVENT DATE: 20201001
